FAERS Safety Report 10302805 (Version 2)
Quarter: 2014Q3

REPORT INFORMATION
  Report Type: Spontaneous
  Country: JP (occurrence: JP)
  Receive Date: 20140714
  Receipt Date: 20140827
  Transmission Date: 20150326
  Serious: Yes (Other)
  Sender: FDA-Public Use
  Company Number: JP-GLAXOSMITHKLINE-B1011432A

PATIENT
  Age: 69 Year
  Sex: Male

DRUGS (7)
  1. LIMAS [Concomitant]
     Active Substance: LITHIUM CARBONATE
     Indication: MOOD SWINGS
     Dosage: 200MG THREE TIMES PER DAY
     Route: 048
  2. BROTIZOLAM [Concomitant]
     Active Substance: BROTIZOLAM
     Indication: INSOMNIA
     Dosage: .25MG PER DAY
     Route: 048
  3. MIDODRINE HYDROCHLORIDE. [Concomitant]
     Active Substance: MIDODRINE HYDROCHLORIDE
     Route: 048
  4. LAMICTAL [Suspect]
     Active Substance: LAMOTRIGINE
     Indication: MOOD SWINGS
     Dosage: 25MG PER DAY
     Route: 048
     Dates: start: 20140218
  5. LAMICTAL [Suspect]
     Active Substance: LAMOTRIGINE
     Indication: MOOD SWINGS
     Dosage: 125MG TWICE PER DAY
     Route: 048
     Dates: start: 20140506, end: 20140528
  6. FLUNITRAZEPAM [Concomitant]
     Active Substance: FLUNITRAZEPAM
     Indication: INSOMNIA
     Dosage: 2MG PER DAY
     Route: 048
  7. ZYPREXA [Concomitant]
     Active Substance: OLANZAPINE
     Indication: MOOD SWINGS
     Dosage: 5MG PER DAY
     Route: 048
     Dates: end: 20140528

REACTIONS (1)
  - Electrocardiogram QT prolonged [Recovered/Resolved]

NARRATIVE: CASE EVENT DATE: 20140530
